FAERS Safety Report 17907770 (Version 4)
Quarter: 2020Q2

REPORT INFORMATION
  Report Type: Spontaneous
  Country: CZ (occurrence: CZ)
  Receive Date: 20200617
  Receipt Date: 20200630
  Transmission Date: 20200714
  Serious: Yes (Life-Threatening, Other)
  Sender: FDA-Public Use
  Company Number: CZ-GILEAD-2020-0472771

PATIENT
  Age: 67 Year
  Sex: Male
  Weight: 98 kg

DRUGS (24)
  1. MAGNESIUM SULFATE. [Concomitant]
     Active Substance: MAGNESIUM SULFATE
  2. SYMBICORT [Concomitant]
     Active Substance: BUDESONIDE\FORMOTEROL FUMARATE DIHYDRATE
  3. DOLFORIN [Concomitant]
     Active Substance: FENTANYL
  4. SEPTONEX [ALKONIUM BROMIDE;HEXACHLOROPHENE] [Concomitant]
  5. CALCICHEW [Concomitant]
     Active Substance: CALCIUM CARBONATE
  6. SUPPORTAN [Concomitant]
  7. MAXIPIME [Concomitant]
     Active Substance: CEFEPIME HYDROCHLORIDE
  8. SOLU-MEDROL [Concomitant]
     Active Substance: METHYLPREDNISOLONE SODIUM SUCCINATE
  9. PARACETAMOL [Concomitant]
     Active Substance: ACETAMINOPHEN
  10. TARGIN [Concomitant]
     Active Substance: NALOXONE HYDROCHLORIDE\OXYCODONE HYDROCHLORIDE
  11. KEPPRA [Concomitant]
     Active Substance: LEVETIRACETAM
  12. DIAREX [ATTAPULGITE;NIFUROXAZIDE] [Concomitant]
  13. ALLOPURINOL. [Concomitant]
     Active Substance: ALLOPURINOL
  14. ZOVIRAX [Concomitant]
     Active Substance: ACYCLOVIR
  15. KIONEX [Concomitant]
     Active Substance: SODIUM POLYSTYRENE SULFONATE
  16. CLEXANE [Concomitant]
     Active Substance: ENOXAPARIN SODIUM
  17. BISEPTOL [Concomitant]
     Active Substance: SULFAMETHOXAZOLE\TRIMETHOPRIM
  18. EL [Concomitant]
  19. ERD [Concomitant]
  20. VANCOMYCIN [Concomitant]
     Active Substance: VANCOMYCIN
  21. YESCARTA [Suspect]
     Active Substance: AXICABTAGENE CILOLEUCEL
     Indication: DIFFUSE LARGE B-CELL LYMPHOMA
     Dosage: UNK
     Route: 042
     Dates: start: 20200609, end: 20200609
  22. PERFALGAN [Concomitant]
     Active Substance: ACETAMINOPHEN
  23. CELEXIN [Concomitant]
  24. MEROPENEM. [Concomitant]
     Active Substance: MEROPENEM

REACTIONS (6)
  - Multiple organ dysfunction syndrome [Not Recovered/Not Resolved]
  - Atrial fibrillation [Unknown]
  - Confusional state [Unknown]
  - Immune effector cell-associated neurotoxicity syndrome [Not Recovered/Not Resolved]
  - Infection [Not Recovered/Not Resolved]
  - Acute kidney injury [Unknown]

NARRATIVE: CASE EVENT DATE: 20200610
